FAERS Safety Report 8713807 (Version 2)
Quarter: 2012Q4

REPORT INFORMATION
  Report Type: Spontaneous
  Country: US (occurrence: None)
  Receive Date: 20120724
  Receipt Date: 20120924
  Transmission Date: 20130627
  Serious: Yes (Hospitalization)
  Sender: FDA-Public Use
  Company Number: SPI201200161

PATIENT
  Age: 56 Year
  Sex: Female

DRUGS (1)
  1. AMITIZA [Suspect]
     Indication: CONSTIPATION PREDOMINANT IRRITABLE BOWEL SYNDROME
     Route: 048
     Dates: start: 20120706, end: 20120708

REACTIONS (1)
  - Pancreatitis [None]
